FAERS Safety Report 10297513 (Version 1)
Quarter: 2014Q3

REPORT INFORMATION
  Report Type: Spontaneous
  Country: FR (occurrence: FR)
  Receive Date: 20140711
  Receipt Date: 20140711
  Transmission Date: 20150326
  Serious: Yes (Hospitalization)
  Sender: FDA-Public Use
  Company Number: PHHY2014FR083579

PATIENT
  Age: 84 Year
  Sex: Male

DRUGS (10)
  1. GENTAMICINE PANPHARMA [Suspect]
     Active Substance: GENTAMICIN
     Indication: SEPTIC ARTHRITIS STAPHYLOCOCCAL
     Dosage: UNK UKN, UNK
     Route: 042
     Dates: start: 20140328, end: 20140330
  2. PARACETAMOL [Concomitant]
     Active Substance: ACETAMINOPHEN
     Indication: PAIN
     Dosage: UNK UKN, UNK
     Route: 042
     Dates: start: 20140328, end: 20140331
  3. LOVENOX [Concomitant]
     Active Substance: ENOXAPARIN SODIUM
     Indication: THROMBOSIS PROPHYLAXIS
     Dosage: UNK UKN, UNK
     Route: 058
     Dates: start: 20140328, end: 20140414
  4. ACUPAN [Concomitant]
     Active Substance: NEFOPAM HYDROCHLORIDE
     Indication: PAIN
     Dosage: UNK UKN, UNK
     Route: 042
     Dates: start: 20140328, end: 20140331
  5. OXYNORMORO [Concomitant]
     Active Substance: OXYCODONE
     Indication: PAIN
     Dosage: UNK UKN, UNK
     Route: 048
     Dates: start: 20140329, end: 20140405
  6. AMOXICILLIN CLAVULANIC ACID SANDOZ [Suspect]
     Active Substance: AMOXICILLIN\CLAVULANIC ACID
     Indication: SEPTIC ARTHRITIS STAPHYLOCOCCAL
     Dosage: UNK UKN, UNK
     Route: 042
     Dates: start: 20140328, end: 20140328
  7. VANCOMYCIN SANDOZ [Suspect]
     Active Substance: VANCOMYCIN
     Indication: SEPTIC ARTHRITIS STAPHYLOCOCCAL
     Dosage: UNK UKN, UNK
     Route: 042
     Dates: start: 20140328, end: 20140328
  8. AMOXICILLIN PANPHARMA [Suspect]
     Active Substance: AMOXICILLIN
     Indication: SEPTIC ARTHRITIS STAPHYLOCOCCAL
     Dosage: UNK UKN, UNK
     Route: 042
     Dates: start: 20140328, end: 20140328
  9. CLOXACILLIN [Suspect]
     Active Substance: CLOXACILLIN
     Indication: SEPTIC ARTHRITIS STAPHYLOCOCCAL
     Dosage: UNK UKN, UNK
     Route: 042
     Dates: start: 20140328, end: 20140401
  10. CEFTRIAXONE PANPHARMA [Suspect]
     Active Substance: CEFTRIAXONE
     Indication: SEPTIC ARTHRITIS STAPHYLOCOCCAL
     Dosage: UNK UKN, UNK
     Route: 042
     Dates: start: 20140328, end: 20140331

REACTIONS (1)
  - Hepatocellular injury [Recovered/Resolved]

NARRATIVE: CASE EVENT DATE: 20140331
